FAERS Safety Report 4278876-0 (Version None)
Quarter: 2004Q1

REPORT INFORMATION
  Report Type: 
  Country: None (occurrence: None)
  Receive Date: 20040122
  Receipt Date: 20040114
  Transmission Date: 20041129
  Serious: Yes (Life-Threatening, Hospitalization, Other)
  Sender: FDA-Public Use
  Company Number: 2001-11-1264

PATIENT
  Age: 62 Year
  Sex: Male
  Weight: 73.4827 kg

DRUGS (15)
  1. ALBUTEROL [Suspect]
     Indication: EMPHYSEMA
     Dosage: 2 PUF QID PRN ORAL AER I
     Route: 055
     Dates: start: 19940101
  2. ATROVENT [Concomitant]
  3. FLOVENT [Concomitant]
  4. SERZONE [Concomitant]
  5. SYNTHROID [Concomitant]
  6. PLAVIX [Concomitant]
  7. PREVACID [Concomitant]
  8. QUININE [Concomitant]
  9. ASPIRIN [Concomitant]
  10. TUSSIONEX [Concomitant]
  11. ALPRAZOLAM [Concomitant]
  12. LOTRISONE (CLOTRIMAZOLE/BETAMETHASONE DIPROPIONATE) [Concomitant]
  13. MYCELEX [Concomitant]
  14. DUONEB [Concomitant]
  15. XANAX [Concomitant]

REACTIONS (11)
  - CHRONIC OBSTRUCTIVE AIRWAYS DISEASE EXACERBATED [None]
  - CIRCULATORY COLLAPSE [None]
  - CYANOSIS [None]
  - DRUG INEFFECTIVE [None]
  - LOSS OF CONSCIOUSNESS [None]
  - MALAISE [None]
  - MYOCARDIAL ISCHAEMIA [None]
  - PALLOR [None]
  - PERIPHERAL COLDNESS [None]
  - SPUTUM DISCOLOURED [None]
  - VENTRICULAR DYSFUNCTION [None]
